FAERS Safety Report 10405860 (Version 1)
Quarter: 2014Q3

REPORT INFORMATION
  Report Type: Spontaneous
  Country: US (occurrence: None)
  Receive Date: 20140822
  Receipt Date: 20140822
  Transmission Date: 20150326
  Serious: Yes (Hospitalization)
  Sender: FDA-Public Use
  Company Number: None

PATIENT
  Age: 78 Year
  Sex: Male
  Weight: 126 kg

DRUGS (12)
  1. LISINOPRIL. [Concomitant]
     Active Substance: LISINOPRIL
  2. ASPRIN [Suspect]
     Active Substance: ASPIRIN
     Indication: ATRIAL FIBRILLATION
     Dosage: 1 TABLET QD ORAL?CHRONIC
     Route: 048
  3. CLARITIN [Concomitant]
     Active Substance: LORATADINE
  4. WARFARIN 5MG [Suspect]
     Active Substance: WARFARIN
     Indication: STENT PLACEMENT
     Dosage: 1 TABLET QD ORAL?CHRONIC
     Route: 048
  5. ASPRIN [Suspect]
     Active Substance: ASPIRIN
     Indication: STENT PLACEMENT
     Dosage: 1 TABLET QD ORAL?CHRONIC
     Route: 048
  6. ETODOLAC. [Concomitant]
     Active Substance: ETODOLAC
  7. PLAVIX [Concomitant]
     Active Substance: CLOPIDOGREL BISULFATE
  8. ATENOLOL-CHLORTHALIDONE [Concomitant]
  9. WARFARIN 5MG [Suspect]
     Active Substance: WARFARIN
     Indication: CORONARY ARTERY DISEASE
     Dosage: 1 TABLET QD ORAL?CHRONIC
     Route: 048
  10. ASPRIN [Suspect]
     Active Substance: ASPIRIN
     Indication: CORONARY ARTERY DISEASE
     Dosage: 1 TABLET QD ORAL?CHRONIC
     Route: 048
  11. WARFARIN 5MG [Suspect]
     Active Substance: WARFARIN
     Indication: ATRIAL FIBRILLATION
     Dosage: 1 TABLET QD ORAL?CHRONIC
     Route: 048
  12. POTASSIUM CHLORIDE CR [Concomitant]
     Active Substance: POTASSIUM CHLORIDE

REACTIONS (2)
  - Haemoglobin decreased [None]
  - Duodenal ulcer haemorrhage [None]

NARRATIVE: CASE EVENT DATE: 20140818
